FAERS Safety Report 6751716-3 (Version None)
Quarter: 2010Q2

REPORT INFORMATION
  Report Type: 
  Country: None (occurrence: None)
  Receive Date: 20100528
  Receipt Date: 20100513
  Transmission Date: 20101027
  Serious: Yes (Hospitalization)
  Sender: FDA-Public Use
  Company Number: 2010000007

PATIENT
  Age: 58 Year
  Sex: Male

DRUGS (5)
  1. ERLOTINIB/PLACEBO (ERLOTINIB) (TABLET) (ERLOTINIB) [Suspect]
     Indication: HEPATIC NEOPLASM MALIGNANT
     Dosage: 150 MG, QD, ORAL
     Route: 048
     Dates: start: 20091202, end: 20091215
  2. SORAFENIB [Suspect]
     Indication: HEPATIC NEOPLASM MALIGNANT
     Dosage: (800 MG, QD) ORAL
     Route: 048
     Dates: start: 20091202, end: 20091215
  3. FUROSEMIDE [Concomitant]
  4. LAMIVUDINE (LAMIVUDINE) [Concomitant]
  5. COLOXYL (DOCUSATE SODIUM) [Concomitant]

REACTIONS (1)
  - PALMAR-PLANTAR ERYTHRODYSAESTHESIA SYNDROME [None]
